FAERS Safety Report 12836987 (Version 4)
Quarter: 2016Q4

REPORT INFORMATION
  Report Type: Spontaneous
  Country: DE (occurrence: DE)
  Receive Date: 20161011
  Receipt Date: 20161130
  Transmission Date: 20170207
  Serious: Yes (Death, Hospitalization, Other)
  Sender: FDA-Public Use
  Company Number: DE-GILEAD-2016-0237116

PATIENT
  Age: 49 Year
  Sex: Male
  Weight: 83 kg

DRUGS (1)
  1. HARVONI [Suspect]
     Active Substance: LEDIPASVIR\SOFOSBUVIR
     Indication: CHRONIC HEPATITIS C
     Dosage: UNK
     Route: 048
     Dates: start: 20160108, end: 20160624

REACTIONS (7)
  - Hepatic failure [Not Recovered/Not Resolved]
  - Hepatic cirrhosis [Unknown]
  - Renal failure [Not Recovered/Not Resolved]
  - Platelet count increased [Recovered/Resolved]
  - Proteinuria [Not Recovered/Not Resolved]
  - Chronic hepatic failure [Fatal]
  - Alpha 1 foetoprotein increased [Unknown]

NARRATIVE: CASE EVENT DATE: 201601
